FAERS Safety Report 5060353-0 (Version None)
Quarter: 2006Q3

REPORT INFORMATION
  Report Type: 
  Country: None (occurrence: None)
  Receive Date: 20060720
  Receipt Date: 20060711
  Transmission Date: 20061208
  Serious: Yes (Other)
  Sender: FDA-Public Use
  Company Number: 2006BH0011785

PATIENT
  Age: 26 Year
  Sex: Female

DRUGS (1)
  1. LACTATED RINGER'S IN PLASTIC CONTAINER [Suspect]
     Dosage: 500 CC; IVBOL
     Route: 040

REACTIONS (4)
  - ERYTHEMA [None]
  - FLUSHING [None]
  - PRURITUS GENERALISED [None]
  - RASH [None]
